FAERS Safety Report 10954030 (Version 1)
Quarter: 2015Q1

REPORT INFORMATION
  Report Type: Report from Study
  Country: US (occurrence: US)
  Receive Date: 20150325
  Receipt Date: 20150325
  Transmission Date: 20150721
  Serious: Yes (Other)
  Sender: FDA-Public Use
  Company Number: US-BAXTER-2015BAX014840

PATIENT
  Age: 74 Year

DRUGS (2)
  1. CYTOXAN [Suspect]
     Active Substance: CYCLOPHOSPHAMIDE
     Indication: PLASMA CELL MYELOMA
     Dosage: WKLY FOR 3 WKS AND THEN OFF 1 WK
     Route: 042
     Dates: start: 20150113, end: 20150130
  2. VELCADE [Suspect]
     Active Substance: BORTEZOMIB
     Indication: PLASMA CELL MYELOMA
     Dosage: NO REST EVERY 7 DAYS
     Route: 058
     Dates: start: 20150113, end: 20150130

REACTIONS (4)
  - No therapeutic response [Unknown]
  - Renal failure [Unknown]
  - Disease complication [Unknown]
  - Plasma cell myeloma [Unknown]

NARRATIVE: CASE EVENT DATE: 20150115
